FAERS Safety Report 16719880 (Version 2)
Quarter: 2020Q2

REPORT INFORMATION
  Report Type: Spontaneous
  Country: US (occurrence: US)
  Receive Date: 20190820
  Receipt Date: 20200415
  Transmission Date: 20200713
  Serious: No
  Sender: FDA-Public Use
  Company Number: US-PFIZER INC-2019356554

PATIENT
  Age: 56 Year
  Sex: Male
  Weight: 93.88 kg

DRUGS (1)
  1. VENLAFAXINE HCL [Suspect]
     Active Substance: VENLAFAXINE HYDROCHLORIDE
     Dosage: 75 MG, DAILY

REACTIONS (2)
  - Drug ineffective [Unknown]
  - Feeling abnormal [Unknown]
